FAERS Safety Report 12265754 (Version 2)
Quarter: 2016Q2

REPORT INFORMATION
  Report Type: Spontaneous
  Country: NL (occurrence: NL)
  Receive Date: 20160413
  Receipt Date: 20160428
  Transmission Date: 20160815
  Serious: No
  Sender: FDA-Public Use
  Company Number: NL-UNITED THERAPEUTICS-UNT-2016-005224

PATIENT
  Age: 20 Year
  Sex: Female

DRUGS (1)
  1. REMODULIN [Suspect]
     Active Substance: TREPROSTINIL
     Indication: PRODUCT USED FOR UNKNOWN INDICATION
     Dosage: UNK
     Route: 058
     Dates: start: 20151110

REACTIONS (9)
  - Nausea [Unknown]
  - Dizziness [Recovered/Resolved]
  - Syringe issue [Recovered/Resolved]
  - Pallor [Recovered/Resolved]
  - Drug dose omission [Unknown]
  - Palpitations [Recovered/Resolved]
  - Chest pain [Recovered/Resolved]
  - Device infusion issue [Unknown]
  - Headache [Unknown]

NARRATIVE: CASE EVENT DATE: 20160329
